FAERS Safety Report 8359274-7 (Version None)
Quarter: 2012Q2

REPORT INFORMATION
  Report Type: 
  Country: None (occurrence: None)
  Receive Date: 20120515
  Receipt Date: 20120507
  Transmission Date: 20120825
  Serious: Yes (Other)
  Sender: FDA-Public Use
  Company Number: TR-BAYER-2012-030308

PATIENT

DRUGS (7)
  1. DICLOFENAC SODIUM [Concomitant]
     Route: 064
  2. CARDIAC MEDICATION [Concomitant]
     Route: 064
  3. ESCITALOPRAM [Concomitant]
     Route: 064
  4. INTERFERON BETA-1B [Suspect]
     Route: 064
  5. MODAFANIL [Concomitant]
     Route: 064
  6. MINOSET PLUS [Concomitant]
     Route: 064
  7. ANTIDEPRESSANTS [Concomitant]
     Route: 064

REACTIONS (1)
  - LIGAMENT SPRAIN [None]
